APPROVED DRUG PRODUCT: AMITRIPTYLINE HYDROCHLORIDE
Active Ingredient: AMITRIPTYLINE HYDROCHLORIDE
Strength: 100MG
Dosage Form/Route: TABLET;ORAL
Application: A212654 | Product #005 | TE Code: AB
Applicant: AIPING PHARMACEUTICAL INC
Approved: Sep 29, 2021 | RLD: No | RS: No | Type: RX